FAERS Safety Report 17022189 (Version 1)
Quarter: 2019Q4

REPORT INFORMATION
  Report Type: Report from Study
  Country: CN (occurrence: CN)
  Receive Date: 20191112
  Receipt Date: 20191112
  Transmission Date: 20200122
  Serious: Yes (Hospitalization, Other)
  Sender: FDA-Public Use
  Company Number: NVSC2019CN032480

PATIENT
  Age: 68 Year
  Sex: Female

DRUGS (5)
  1. LETROZOLE. [Suspect]
     Active Substance: LETROZOLE
     Indication: BREAST CANCER METASTATIC
     Dosage: 2.5 MG, QD
     Route: 048
     Dates: start: 20180228
  2. MELILOTUS OFFICINALIS [Concomitant]
     Indication: PRODUCT USED FOR UNKNOWN INDICATION
     Dosage: UNK
     Route: 065
  3. GLICLAZIDE [Concomitant]
     Active Substance: GLICLAZIDE
     Indication: PRODUCT USED FOR UNKNOWN INDICATION
     Dosage: UNK
     Route: 065
  4. URSODEOXYCHOLIC ACID [Concomitant]
     Active Substance: URSODIOL
     Indication: PRODUCT USED FOR UNKNOWN INDICATION
     Dosage: UNK
     Route: 065
     Dates: start: 20190722
  5. POLYENE PHOSPHATIDYLCHOLINE [Concomitant]
     Active Substance: PHOSPHOLIPID
     Indication: PRODUCT USED FOR UNKNOWN INDICATION
     Dosage: UNK
     Route: 065
     Dates: start: 20180426

REACTIONS (17)
  - Productive cough [Recovered/Resolved]
  - Oedema peripheral [Recovered/Resolved]
  - Neutrophil count abnormal [Unknown]
  - Pyrexia [Recovered/Resolved]
  - Rales [Unknown]
  - Thyroid mass [Unknown]
  - Lung disorder [Unknown]
  - Pneumonia [Recovered/Resolved]
  - Nasopharyngitis [Recovered/Resolved]
  - Pelvic inflammatory disease [Unknown]
  - Ascites [Unknown]
  - Cyanosis [Unknown]
  - Cholelithiasis [Unknown]
  - Asthenia [Unknown]
  - Breath sounds abnormal [Unknown]
  - Pulmonary mass [Unknown]
  - Chills [Unknown]

NARRATIVE: CASE EVENT DATE: 20190812
